FAERS Safety Report 20947693 (Version 1)
Quarter: 2022Q2

REPORT INFORMATION
  Report Type: Spontaneous
  Country: DE (occurrence: DE)
  Receive Date: 20220611
  Receipt Date: 20220611
  Transmission Date: 20220721
  Serious: Yes (Other)
  Sender: FDA-Public Use
  Company Number: DE-EMBRYOTOX-202112435

PATIENT
  Age: 35 Year
  Sex: Female
  Weight: 51 kg

DRUGS (5)
  1. BISOPROLOL [Suspect]
     Active Substance: BISOPROLOL
     Indication: Hypertension
     Dosage: 7.5 MILLIGRAM DAILY; 7.5 [MG/D ] , DURATION : 64 DAYS , ADDITIONAL INFO : 14.5. - 23.6. GESTATIONAL
     Route: 048
     Dates: start: 20210521, end: 20210724
  2. CANDESARTAN [Suspect]
     Active Substance: CANDESARTAN
     Indication: Hypertension
     Dosage: 16 MILLIGRAM DAILY; 16 [MG/D ] , DURATION : 91 DAYS , ADDITIONAL INFO : 0. - 13. GESTATIONAL WEEK
     Route: 048
     Dates: start: 20210207, end: 20210509
  3. AMLODIPINE [Suspect]
     Active Substance: AMLODIPINE BESYLATE
     Indication: Hypertension
     Dosage: 5 MILLIGRAM DAILY; 5 [MG/D ] , DURATION : 91 DAYS , ADDITIONAL INFO : 0. - 13. GESTATIONAL WEEK
     Route: 048
     Dates: start: 20210207, end: 20210509
  4. METHYLDOPA [Suspect]
     Active Substance: METHYLDOPA
     Indication: Hypertension
     Dosage: 2000 MILLIGRAM DAILY; 2000 [MG/D ] 4 SEPARATED DOSES , DURATION : 75 DAYS , FREQUENCY TIME : 1 DAY ,
     Route: 048
     Dates: start: 20210510, end: 20210724
  5. METHYLDOPA [Concomitant]
     Active Substance: METHYLDOPA
     Indication: Hypertension
     Dosage: 200 MILLIGRAM DAILY; 200 MG/D , DURATION : 64 DAYS
     Route: 048
     Dates: start: 20210521, end: 20210724

REACTIONS (4)
  - Ultrasound uterus abnormal [Recovered/Resolved]
  - Foetal growth restriction [Recovered/Resolved]
  - Placental insufficiency [Recovered/Resolved]
  - Maternal exposure during pregnancy [Unknown]

NARRATIVE: CASE EVENT DATE: 20210207
